FAERS Safety Report 12844669 (Version 1)
Quarter: 2016Q4

REPORT INFORMATION
  Report Type: Report from Study
  Country: None (occurrence: US)
  Receive Date: 20161013
  Receipt Date: 20161013
  Transmission Date: 20170207
  Serious: Yes (Hospitalization, Other)
  Sender: FDA-Public Use
  Company Number: US-ABBVIE-16K-163-1712555-00

PATIENT
  Age: 28 Year
  Sex: Female
  Weight: 45.4 kg

DRUGS (2)
  1. HUMIRA [Suspect]
     Active Substance: ADALIMUMAB
     Indication: CROHN^S DISEASE
     Route: 058
     Dates: start: 201601, end: 201608
  2. HUMIRA [Suspect]
     Active Substance: ADALIMUMAB
     Route: 058
     Dates: start: 2016

REACTIONS (7)
  - Skin exfoliation [Not Recovered/Not Resolved]
  - Animal scratch [Recovered/Resolved]
  - Skin discolouration [Not Recovered/Not Resolved]
  - Post procedural sepsis [Recovered/Resolved]
  - Drug effect incomplete [Not Recovered/Not Resolved]
  - Skin exfoliation [Not Recovered/Not Resolved]
  - Anal abscess [Recovering/Resolving]

NARRATIVE: CASE EVENT DATE: 2016
